FAERS Safety Report 12547314 (Version 2)
Quarter: 2017Q1

REPORT INFORMATION
  Report Type: Spontaneous
  Country: US (occurrence: US)
  Receive Date: 20160711
  Receipt Date: 20170119
  Transmission Date: 20170428
  Serious: No
  Sender: FDA-Public Use
  Company Number: US-EGALET US INC-US-2016EGA000120

PATIENT

DRUGS (6)
  1. SPRIX [Suspect]
     Active Substance: KETOROLAC TROMETHAMINE
     Indication: NECK PAIN
  2. PERCOCET                           /00446701/ [Concomitant]
     Active Substance: ACETAMINOPHEN\OXYCODONE HYDROCHLORIDE\OXYCODONE TEREPHTHALATE
     Indication: PRODUCT USED FOR UNKNOWN INDICATION
     Dosage: UNK DF, UNK
  3. SPRIX [Suspect]
     Active Substance: KETOROLAC TROMETHAMINE
     Indication: MUSCLE STRAIN
  4. TIZANIDINE. [Concomitant]
     Active Substance: TIZANIDINE
     Indication: PRODUCT USED FOR UNKNOWN INDICATION
     Dosage: UNK DF, UNK
  5. SPRIX [Suspect]
     Active Substance: KETOROLAC TROMETHAMINE
     Indication: SPINAL PAIN
  6. SPRIX [Suspect]
     Active Substance: KETOROLAC TROMETHAMINE
     Indication: PAIN
     Dosage: 1 DF, EVERY 6 HOURS FOR 5 DAYS
     Route: 045
     Dates: start: 201602

REACTIONS (2)
  - Epistaxis [Recovering/Resolving]
  - Dizziness [Recovering/Resolving]

NARRATIVE: CASE EVENT DATE: 201602
